FAERS Safety Report 14615655 (Version 1)
Quarter: 2018Q1

REPORT INFORMATION
  Report Type: Spontaneous
  Country: US (occurrence: US)
  Receive Date: 20180309
  Receipt Date: 20180309
  Transmission Date: 20180509
  Serious: Yes (Hospitalization)
  Sender: FDA-Public Use
  Company Number: US-ROCHE-2082372

PATIENT
  Sex: Male

DRUGS (10)
  1. PREDNISONE. [Concomitant]
     Active Substance: PREDNISONE
  2. WARFARIN [Concomitant]
     Active Substance: WARFARIN
  3. RAMIPRIL. [Concomitant]
     Active Substance: RAMIPRIL
  4. LOSARTAN. [Concomitant]
     Active Substance: LOSARTAN
  5. PANTOPRAZOLE [Concomitant]
     Active Substance: PANTOPRAZOLE
  6. CARVEDILOL. [Concomitant]
     Active Substance: CARVEDILOL
     Route: 065
  7. ACTEMRA [Suspect]
     Active Substance: TOCILIZUMAB
     Indication: TEMPORAL ARTERITIS
     Route: 058
  8. ROSUVASTATIN. [Concomitant]
     Active Substance: ROSUVASTATIN
  9. BOSULIF [Suspect]
     Active Substance: BOSUTINIB MONOHYDRATE
     Indication: TEMPORAL ARTERITIS
     Dosage: 2 TABLETS DAILY
     Route: 048
     Dates: start: 20180209
  10. AMLODIPINE [Concomitant]
     Active Substance: AMLODIPINE BESYLATE

REACTIONS (2)
  - Pneumonia [Unknown]
  - Temporal arteritis [Unknown]
